FAERS Safety Report 19926489 (Version 1)
Quarter: 2021Q4

REPORT INFORMATION
  Report Type: Spontaneous
  Country: US (occurrence: US)
  Receive Date: 20211006
  Receipt Date: 20211006
  Transmission Date: 20220303
  Serious: Yes (Other)
  Sender: FDA-Public Use
  Company Number: US-TEVA-2021-US-1961172

PATIENT
  Age: 22 Year
  Sex: Female

DRUGS (4)
  1. RISPERIDONE [Suspect]
     Active Substance: RISPERIDONE
     Indication: Post-traumatic stress disorder
     Dosage: .5 MILLIGRAM DAILY; EVERY NIGHT
     Route: 065
  2. ARIPIPRAZOLE [Suspect]
     Active Substance: ARIPIPRAZOLE
     Indication: Post-traumatic stress disorder
     Route: 065
  3. ILOPERIDONE [Suspect]
     Active Substance: ILOPERIDONE
     Indication: Post-traumatic stress disorder
     Route: 065
  4. ZIPRASIDONE [Suspect]
     Active Substance: ZIPRASIDONE
     Indication: Post-traumatic stress disorder
     Route: 065

REACTIONS (3)
  - Hyperprolactinaemia [Recovered/Resolved]
  - Amenorrhoea [Recovered/Resolved]
  - Drug ineffective [Unknown]
